FAERS Safety Report 15211099 (Version 1)
Quarter: 2018Q3

REPORT INFORMATION
  Report Type: Report from Study
  Country: GB (occurrence: GB)
  Receive Date: 20180728
  Receipt Date: 20180728
  Transmission Date: 20181010
  Serious: Yes (Death)
  Sender: FDA-Public Use
  Company Number: GB-UCBSA-2018032737

PATIENT
  Age: 34 Year
  Sex: Male

DRUGS (2)
  1. CERTOLIZUMAB PEGOL PSA AUTOCLICKS [Suspect]
     Active Substance: CERTOLIZUMAB PEGOL
     Indication: PSORIATIC ARTHROPATHY
     Dosage: 400 MG, EV 2 WEEKS(QOW)
     Route: 058
     Dates: start: 20170202
  2. CERTOLIZUMAB PEGOL PSA AUTOCLICKS [Suspect]
     Active Substance: CERTOLIZUMAB PEGOL
     Dosage: 200 MG, EV 2 WEEKS(QOW)
     Route: 058
     Dates: end: 20180703

REACTIONS (1)
  - Death [Fatal]

NARRATIVE: CASE EVENT DATE: 20180703
